FAERS Safety Report 9836762 (Version 1)
Quarter: 2014Q1

REPORT INFORMATION
  Report Type: Spontaneous
  Country: US (occurrence: US)
  Receive Date: 20140123
  Receipt Date: 20140123
  Transmission Date: 20141002
  Serious: No
  Sender: FDA-Public Use
  Company Number: US-PFIZER INC-2014016153

PATIENT
  Sex: Female

DRUGS (2)
  1. XELJANZ [Suspect]
     Dosage: 1 DF, 1X/DAY (1 A DAY)
  2. XELJANZ [Suspect]
     Dosage: 2 DF, 1X/DAY (2 A DAY)

REACTIONS (1)
  - Drug ineffective [Unknown]
